FAERS Safety Report 23741053 (Version 1)
Quarter: 2024Q2

REPORT INFORMATION
  Report Type: Report from Study
  Country: US (occurrence: None)
  Receive Date: 20240415
  Receipt Date: 20240415
  Transmission Date: 20240716
  Serious: Yes (Death, Hospitalization, Other)
  Sender: FDA-Public Use
  Company Number: 2020SF31129

PATIENT
  Sex: Female

DRUGS (1)
  1. SYMBICORT [Suspect]
     Active Substance: BUDESONIDE\FORMOTEROL FUMARATE DIHYDRATE
     Indication: Chronic obstructive pulmonary disease
     Dosage: 160-4.5 MCG, UNKNOWN UNKNOWN
     Route: 055

REACTIONS (4)
  - Renal failure [Unknown]
  - Small cell lung cancer [Unknown]
  - Oncologic complication [Unknown]
  - Metastases to liver [Fatal]
